FAERS Safety Report 6810751-7 (Version None)
Quarter: 2010Q2

REPORT INFORMATION
  Report Type: 
  Country: None (occurrence: None)
  Receive Date: 20100630
  Receipt Date: 20070901
  Transmission Date: 20101027
  Serious: No
  Sender: FDA-Public Use
  Company Number: US-PFIZER INC-2007055424

PATIENT
  Sex: Female
  Weight: 63 kg

DRUGS (4)
  1. ESTRING [Suspect]
     Indication: VULVOVAGINAL PRURITUS
     Dates: start: 20070201, end: 20070601
  2. ESTRING [Suspect]
     Indication: VULVOVAGINAL DRYNESS
  3. ZANTAC [Concomitant]
  4. VIVELLE-DOT [Concomitant]

REACTIONS (1)
  - VAGINITIS BACTERIAL [None]
